FAERS Safety Report 9824201 (Version 2)
Quarter: 2014Q1

REPORT INFORMATION
  Report Type: Spontaneous
  Country: US (occurrence: US)
  Receive Date: 20140116
  Receipt Date: 20140116
  Transmission Date: 20141002
  Serious: Yes (Other)
  Sender: FDA-Public Use
  Company Number: -SAAVPROD-MOZO-1000855

PATIENT
  Age: 71 Year
  Sex: Male
  Weight: 109 kg

DRUGS (2)
  1. PLERIXAFOR [Suspect]
     Indication: HAEMATOPOIETIC STEM CELL MOBILISATION
     Dosage: 23 MG, BID
     Route: 059
     Dates: start: 20130429, end: 20130430
  2. FILGRASTIM [Concomitant]
     Indication: PRODUCT USED FOR UNKNOWN INDICATION
     Dosage: UNK, FOR 04 NIGHTS
     Route: 065

REACTIONS (1)
  - Leukocytosis [Recovered/Resolved]
